FAERS Safety Report 5797403-X (Version None)
Quarter: 2008Q3

REPORT INFORMATION
  Report Type: 
  Country: None (occurrence: None)
  Receive Date: 20080701
  Receipt Date: 20080624
  Transmission Date: 20090109
  Serious: Yes (Hospitalization)
  Sender: FDA-Public Use
  Company Number: US-BOEHRINGER INGELHEIM GMBH, GERMANY-2008-BP-09653BP

PATIENT
  Age: 72 Year
  Sex: Male

DRUGS (7)
  1. MIRAPEX [Suspect]
     Indication: PARKINSON'S DISEASE
     Route: 048
     Dates: end: 20080617
  2. STALEVO 100 [Concomitant]
     Indication: PARKINSON'S DISEASE
  3. AZILECT [Concomitant]
     Indication: PARKINSON'S DISEASE
  4. CLONIDINE [Concomitant]
     Indication: HYPERTENSION
  5. FLOMAX [Concomitant]
     Indication: BENIGN PROSTATIC HYPERPLASIA
  6. ZYRTEC [Concomitant]
     Indication: HYPERSENSITIVITY
  7. GLYCOLAX [Concomitant]
     Indication: CONSTIPATION

REACTIONS (2)
  - HALLUCINATION, VISUAL [None]
  - PSYCHOTIC DISORDER [None]
